FAERS Safety Report 17564445 (Version 3)
Quarter: 2020Q2

REPORT INFORMATION
  Report Type: Spontaneous
  Country: JP (occurrence: JP)
  Receive Date: 20200320
  Receipt Date: 20200422
  Transmission Date: 20200713
  Serious: No
  Sender: FDA-Public Use
  Company Number: JP-BEH-2020114664

PATIENT
  Age: 69 Year
  Sex: Female
  Weight: 75 kg

DRUGS (18)
  1. MAGMITT [Concomitant]
     Active Substance: MAGNESIUM OXIDE
  2. EPERISONE [Concomitant]
     Active Substance: EPERISONE
  3. PREDONINE [PREDNISOLONE ACETATE] [Concomitant]
     Active Substance: PREDNISOLONE ACETATE
  4. SINGULAIR [Concomitant]
     Active Substance: MONTELUKAST SODIUM
  5. AMBROXOL [Concomitant]
     Active Substance: AMBROXOL
  6. REBAMIPIDE [Concomitant]
     Active Substance: REBAMIPIDE
  7. NEXIUM [Suspect]
     Active Substance: ESOMEPRAZOLE MAGNESIUM
  8. ALLELOCK [Concomitant]
     Active Substance: OLOPATADINE HYDROCHLORIDE
  9. HIZENTRA [Suspect]
     Active Substance: HUMAN IMMUNOGLOBULIN G
     Dosage: 8 GRAM, SINGLE ONCE
     Route: 058
     Dates: start: 20191008, end: 20200217
  10. LENDORMIN [Concomitant]
     Active Substance: BROTIZOLAM
  11. AMLODIPINE [Concomitant]
     Active Substance: AMLODIPINE BESYLATE
  12. HIZENTRA [Suspect]
     Active Substance: HUMAN IMMUNOGLOBULIN G
     Indication: CHRONIC INFLAMMATORY DEMYELINATING POLYRADICULONEUROPATHY
     Dosage: 20 GRAM, QW
     Route: 058
     Dates: start: 20191021, end: 20191021
  13. HIZENTRA [Suspect]
     Active Substance: HUMAN IMMUNOGLOBULIN G
     Dosage: 20 GRAM, QW 16 TIMES
     Route: 058
     Dates: start: 20191008, end: 20200217
  14. CELECOX [Concomitant]
     Active Substance: CELECOXIB
  15. VESICARE [Concomitant]
     Active Substance: SOLIFENACIN SUCCINATE
  16. MYSLEE [Concomitant]
     Active Substance: ZOLPIDEM TARTRATE
  17. METHYCOBAL [Concomitant]
     Active Substance: METHYLCOBALAMIN
  18. PURSENNIDE [SENNOSIDE A+B CALCIUM] [Concomitant]

REACTIONS (6)
  - Erythema [Unknown]
  - Rash vesicular [Recovering/Resolving]
  - Rash [Recovering/Resolving]
  - Conjunctival disorder [Unknown]
  - Injection site erythema [Unknown]
  - Blister [Unknown]

NARRATIVE: CASE EVENT DATE: 20191008
